FAERS Safety Report 12530614 (Version 4)
Quarter: 2016Q4

REPORT INFORMATION
  Report Type: Spontaneous
  Country: US (occurrence: US)
  Receive Date: 20160706
  Receipt Date: 20161107
  Transmission Date: 20170207
  Serious: No
  Sender: FDA-Public Use
  Company Number: US-GLAXOSMITHKLINE-US2016089412

PATIENT
  Age: 88 Year
  Sex: Female

DRUGS (4)
  1. SINGULAIR [Concomitant]
     Active Substance: MONTELUKAST SODIUM
  2. ATENOLOL. [Concomitant]
     Active Substance: ATENOLOL
  3. VENTOLIN HFA [Suspect]
     Active Substance: ALBUTEROL SULFATE
     Indication: MYCOBACTERIUM AVIUM COMPLEX INFECTION
     Dosage: 2 PUFF(S), TID
     Route: 055
     Dates: start: 201603
  4. ZETIA [Concomitant]
     Active Substance: EZETIMIBE

REACTIONS (4)
  - Drug ineffective [Recovered/Resolved]
  - Dyspnoea [Recovered/Resolved]
  - Device use error [Not Recovered/Not Resolved]
  - Product quality issue [Unknown]

NARRATIVE: CASE EVENT DATE: 201606
